FAERS Safety Report 23953708 (Version 1)
Quarter: 2024Q2

REPORT INFORMATION
  Report Type: Other
  Country: CN (occurrence: CN)
  Receive Date: 20240608
  Receipt Date: 20240608
  Transmission Date: 20240716
  Serious: Yes (Life-Threatening, Hospitalization, Disabling, Other)
  Sender: FDA-Public Use
  Company Number: CN-B.Braun Medical Inc.-2157903

PATIENT
  Age: 53 Year
  Sex: Male
  Weight: 65 kg

DRUGS (1)
  1. LIDOCAINE HYDROCHLORIDE [Suspect]
     Active Substance: LIDOCAINE HYDROCHLORIDE
     Indication: Nerve block

REACTIONS (10)
  - Headache [Recovered/Resolved]
  - Medication error [Recovered/Resolved]
  - Incorrect route of product administration [Recovered/Resolved]
  - Inadvertent injection air bubble [Recovered/Resolved]
  - Binocular visual dysfunction [Recovered/Resolved]
  - Blindness transient [Recovered/Resolved]
  - Cerebral infarction [Recovered/Resolved]
  - Restlessness [Recovered/Resolved]
  - Fatigue [Recovered/Resolved]
  - Altered state of consciousness [Recovered/Resolved]
